FAERS Safety Report 8797766 (Version 1)
Quarter: 2012Q4

REPORT INFORMATION
  Report Type: 
  Country: US (occurrence: US)
  Receive Date: 20120919
  Receipt Date: 20120919
  Transmission Date: 20130627
  Serious: Yes (Hospitalization)
  Sender: FDA-Public Use
  Company Number: US-ROCHE-1130515

PATIENT
  Sex: Female

DRUGS (4)
  1. ACTEMRA [Suspect]
     Indication: RHEUMATOID ARTHRITIS
     Route: 042
  2. REMICADE [Concomitant]
  3. METHOTREXATE [Concomitant]
  4. CELEBREX [Concomitant]

REACTIONS (3)
  - Pancreatitis [Unknown]
  - Diverticulitis [Unknown]
  - Herpes zoster [Unknown]
